FAERS Safety Report 19981573 (Version 2)
Quarter: 2022Q1

REPORT INFORMATION
  Report Type: Report from Study
  Country: US (occurrence: US)
  Receive Date: 20211022
  Receipt Date: 20220110
  Transmission Date: 20220423
  Serious: No
  Sender: FDA-Public Use
  Company Number: US-NOVARTISTESTPH-NVSC2021US238781

PATIENT
  Sex: Female

DRUGS (1)
  1. COSENTYX [Suspect]
     Active Substance: SECUKINUMAB
     Indication: Product used for unknown indication
     Dosage: 300 MG, BID
     Route: 065
     Dates: start: 202107, end: 202110

REACTIONS (6)
  - Depression [Unknown]
  - Anxiety [Unknown]
  - Nausea [Unknown]
  - Dyspnoea [Unknown]
  - Feeling cold [Unknown]
  - Adverse drug reaction [Unknown]
